FAERS Safety Report 25622739 (Version 1)
Quarter: 2025Q3

REPORT INFORMATION
  Report Type: Spontaneous
  Country: US (occurrence: None)
  Receive Date: 20250729
  Receipt Date: 20250729
  Transmission Date: 20251020
  Serious: Yes (Disabling)
  Sender: FDA-CTU
  Company Number: None

PATIENT
  Age: 58 Year
  Sex: Male
  Weight: 100.8 kg

DRUGS (5)
  1. REPATHA [Suspect]
     Active Substance: EVOLOCUMAB
     Indication: Low density lipoprotein increased
     Route: 050
     Dates: start: 20250530, end: 20250627
  2. ATENOLOL [Concomitant]
     Active Substance: ATENOLOL
  3. LOSARTAN [Concomitant]
     Active Substance: LOSARTAN
  4. AMLODIPINE [Concomitant]
     Active Substance: AMLODIPINE BESYLATE
  5. VITAMINS [Concomitant]
     Active Substance: VITAMINS

REACTIONS (9)
  - Back pain [None]
  - Mobility decreased [None]
  - Dysstasia [None]
  - Gait disturbance [None]
  - Pain in extremity [None]
  - Hypoaesthesia [None]
  - Bone pain [None]
  - Myalgia [None]
  - Nerve injury [None]

NARRATIVE: CASE EVENT DATE: 20250702
